FAERS Safety Report 19888358 (Version 1)
Quarter: 2021Q3

REPORT INFORMATION
  Report Type: Spontaneous
  Country: US (occurrence: US)
  Receive Date: 20210927
  Receipt Date: 20210927
  Transmission Date: 20211014
  Serious: Yes (Disabling, Other)
  Sender: FDA-Public Use
  Company Number: None

PATIENT
  Age: 41 Year
  Sex: Female
  Weight: 60.75 kg

DRUGS (7)
  1. MAXALT [Concomitant]
     Active Substance: RIZATRIPTAN BENZOATE
  2. PRENATAL VITAMINS [Concomitant]
     Active Substance: VITAMINS
  3. EMGALITY [Concomitant]
     Active Substance: GALCANEZUMAB-GNLM
  4. UBRELVY [Concomitant]
     Active Substance: UBROGEPANT
  5. VITAMIN C [Concomitant]
     Active Substance: ASCORBIC ACID
  6. AIMOVIG [Suspect]
     Active Substance: ERENUMAB-AOOE
     Indication: MIGRAINE
     Dosage: ?          QUANTITY:1 INJECTION(S);OTHER FREQUENCY:MONTHLY;?
     Route: 058
     Dates: start: 20210415, end: 20210820
  7. VITAMIN D [Concomitant]
     Active Substance: VITAMIN D NOS

REACTIONS (10)
  - Nightmare [None]
  - Fatigue [None]
  - Road traffic accident [None]
  - Vertigo [None]
  - Impaired work ability [None]
  - Confusional state [None]
  - Insomnia [None]
  - Limb injury [None]
  - Craniocerebral injury [None]
  - Memory impairment [None]

NARRATIVE: CASE EVENT DATE: 20210415
